FAERS Safety Report 6155798-1 (Version None)
Quarter: 2009Q2

REPORT INFORMATION
  Report Type: 
  Country: None (occurrence: None)
  Receive Date: 20090415
  Receipt Date: 20090408
  Transmission Date: 20091009
  Serious: Yes (Other)
  Sender: FDA-Public Use
  Company Number: IN-BAYER-200818911GPV

PATIENT
  Age: 17 Year
  Sex: Male

DRUGS (14)
  1. FLUDARABINE PHOSPHATE [Suspect]
     Indication: ACUTE MYELOID LEUKAEMIA
     Route: 042
  2. IDARUBICIN HCL [Suspect]
     Indication: ACUTE MYELOID LEUKAEMIA
     Dosage: FIRST THERAPY, IN COMBINATION WITH CYTARABINE (HDCT)
     Route: 065
  3. IDARUBICIN HCL [Suspect]
     Dosage: IN COMBINATION WITH FLUDARABINE, ARA-C AND MYELOTARG
     Route: 065
  4. ARA-C [Suspect]
     Indication: ACUTE MYELOID LEUKAEMIA
     Dosage: FOR 4 DAYS IN TWO COURSES
     Route: 065
  5. ARA-C [Suspect]
     Dosage: IN COMBINATION WITH FLUDARABINE, IDARUBICINE AND MYELOTARG
     Route: 065
  6. MYLOTARG [Suspect]
     Indication: ACUTE MYELOID LEUKAEMIA
     Route: 065
  7. CYTARABINE [Suspect]
     Indication: ACUTE MYELOID LEUKAEMIA
     Dosage: IN COMBINATION WITH IDARUBICINE
     Route: 065
  8. CYTARABINE [Suspect]
     Dosage: REDUCED TO 20 MG/M2 FOR 5 DAYS
     Route: 065
  9. BUSULPHAN [Suspect]
     Indication: STEM CELL TRANSPLANT
     Dosage: FOR 4 DAYS
     Route: 065
  10. CYCLOPHOSPHAMIDE [Suspect]
     Indication: STEM CELL TRANSPLANT
     Dosage: FOR 2 DAYS.
     Route: 065
  11. METHOTREXATE [Concomitant]
     Indication: PROPHYLAXIS AGAINST GRAFT VERSUS HOST DISEASE
     Route: 065
  12. CYCLOSPORINE [Concomitant]
     Indication: PROPHYLAXIS AGAINST GRAFT VERSUS HOST DISEASE
     Route: 065
  13. GM-CSF [Concomitant]
     Indication: PROPHYLAXIS AGAINST GRAFT VERSUS HOST DISEASE
     Route: 065
  14. METHYLPREDNISOLONE 4MG TAB [Concomitant]
     Indication: ACUTE GRAFT VERSUS HOST DISEASE IN INTESTINE
     Route: 065

REACTIONS (3)
  - FEBRILE NEUTROPENIA [None]
  - FUNGAL INFECTION [None]
  - GRAFT VERSUS HOST DISEASE [None]
